FAERS Safety Report 4861111-X (Version None)
Quarter: 2005Q4

REPORT INFORMATION
  Report Type: 
  Country: None (occurrence: None)
  Receive Date: 20051216
  Receipt Date: 20051128
  Transmission Date: 20060501
  Serious: Yes (Hospitalization, Other)
  Sender: FDA-Public Use
  Company Number: US_0507119845

PATIENT
  Age: 52 Year
  Sex: Male
  Weight: 100 kg

DRUGS (5)
  1. ZYPREXA [Suspect]
     Indication: PARANOIA
     Dosage: 5 MG, 2/D, ORAL
     Route: 048
     Dates: start: 19980101, end: 19980901
  2. ACTOS (PIOGLITAZONE UNKNOWN FORMULATION) [Concomitant]
  3. RISPERDAL [Concomitant]
  4. DYAZIDE /CAN/(HYDROCHLOROTHIAZIDE, TRIAMTERENE) [Concomitant]
  5. ABILIFY [Concomitant]

REACTIONS (26)
  - ASPARTATE AMINOTRANSFERASE DECREASED [None]
  - ASPARTATE AMINOTRANSFERASE INCREASED [None]
  - BILIARY DILATATION [None]
  - BILIRUBIN CONJUGATED INCREASED [None]
  - BLOOD ALKALINE PHOSPHATASE INCREASED [None]
  - BLOOD BILIRUBIN INCREASED [None]
  - BLOOD CHOLESTEROL INCREASED [None]
  - BLOOD TRIGLYCERIDES INCREASED [None]
  - DEHYDRATION [None]
  - DIABETES MELLITUS [None]
  - DIABETES MELLITUS INADEQUATE CONTROL [None]
  - ELECTROLYTE IMBALANCE [None]
  - GAMMA-GLUTAMYLTRANSFERASE INCREASED [None]
  - GLYCOSYLATED HAEMOGLOBIN INCREASED [None]
  - HAEMATURIA [None]
  - HIGH DENSITY LIPOPROTEIN DECREASED [None]
  - HYPOTENSION [None]
  - INFECTION [None]
  - LOW DENSITY LIPOPROTEIN INCREASED [None]
  - NEPHROLITHIASIS [None]
  - ORTHOSTATIC HYPOTENSION [None]
  - PANCREATIC ABSCESS [None]
  - PANCREATIC PSEUDOCYST [None]
  - PANCREATITIS ACUTE [None]
  - SPLENOMEGALY [None]
  - WHITE BLOOD CELL COUNT INCREASED [None]
